FAERS Safety Report 9127673 (Version 1)
Quarter: 2013Q1

REPORT INFORMATION
  Report Type: Spontaneous
  Country: US (occurrence: US)
  Receive Date: 20130228
  Receipt Date: 20130228
  Transmission Date: 20140127
  Serious: No
  Sender: FDA-Public Use
  Company Number: US-GLAXOSMITHKLINE-A0991309A

PATIENT
  Age: 42 Year
  Sex: Female

DRUGS (6)
  1. LAMOTRIGINE [Suspect]
     Indication: AFFECTIVE DISORDER
     Route: 048
     Dates: start: 2009
  2. ZOFRAN [Concomitant]
  3. FENTANYL [Concomitant]
  4. LORTAB [Concomitant]
  5. XANAX [Concomitant]
  6. GABAPENTIN [Concomitant]

REACTIONS (1)
  - Drug screen positive [Recovered/Resolved]
